FAERS Safety Report 9263493 (Version 1)
Quarter: 2013Q2

REPORT INFORMATION
  Report Type: Spontaneous
  Country: US (occurrence: US)
  Receive Date: 20130430
  Receipt Date: 20130430
  Transmission Date: 20140414
  Serious: No
  Sender: FDA-Public Use
  Company Number: US-ABBOTT-13P-163-1066384-00

PATIENT
  Age: 84 Year
  Sex: Female
  Weight: 61.29 kg

DRUGS (2)
  1. CREON [Suspect]
     Indication: DIARRHOEA
     Dosage: 24,000 USPUNITS LIPASE; 76,000 USPUNITS PROTEASE; 120,000 USPUNITS AMYLASE DELAYED RELEASE
     Route: 048
     Dates: start: 20130311
  2. CREON [Suspect]
     Indication: IRRITABLE BOWEL SYNDROME

REACTIONS (1)
  - Rash [Not Recovered/Not Resolved]
